FAERS Safety Report 9681000 (Version 1)
Quarter: 2013Q4

REPORT INFORMATION
  Report Type: Spontaneous
  Country: US (occurrence: None)
  Receive Date: 20131108
  Receipt Date: 20131108
  Transmission Date: 20140711
  Serious: Yes (Life-Threatening, Hospitalization)
  Sender: FDA-Public Use
  Company Number: None

PATIENT
  Age: 48 Year
  Sex: Male
  Weight: 130.9 kg

DRUGS (1)
  1. PONATINIB [Suspect]
     Dates: start: 20130430

REACTIONS (6)
  - Nausea [None]
  - Skin exfoliation [None]
  - Erythema [None]
  - Electrocardiogram ST segment depression [None]
  - Chest pain [None]
  - Angina pectoris [None]
